APPROVED DRUG PRODUCT: ZOMETA
Active Ingredient: ZOLEDRONIC ACID
Strength: EQ 4MG BASE/VIAL **Federal Register determination that product was not discontinued or withdrawn for safety or effectiveness reasons**
Dosage Form/Route: INJECTABLE;INTRAVENOUS
Application: N021223 | Product #001
Applicant: NOVARTIS PHARMACEUTICALS CORP
Approved: Aug 20, 2001 | RLD: Yes | RS: No | Type: DISCN